FAERS Safety Report 15310993 (Version 4)
Quarter: 2019Q4

REPORT INFORMATION
  Report Type: Report from Study
  Country: AR (occurrence: AR)
  Receive Date: 20180823
  Receipt Date: 20191030
  Transmission Date: 20200122
  Serious: Yes (Other)
  Sender: FDA-Public Use
  Company Number: AR-ACTELION-A-CH2018-177865

PATIENT
  Age: 39 Year
  Sex: Female
  Weight: 37 kg

DRUGS (2)
  1. OPSUMIT [Suspect]
     Active Substance: MACITENTAN
     Indication: PULMONARY ARTERIAL HYPERTENSION
     Dosage: 1 DF, QD
     Route: 048
     Dates: start: 20170101
  2. OPSUMIT [Suspect]
     Active Substance: MACITENTAN
     Dosage: 10 MG
     Route: 048
     Dates: start: 20170601

REACTIONS (6)
  - Cardiac disorder [Recovering/Resolving]
  - Bronchospasm [Unknown]
  - Pyrexia [Unknown]
  - Abdominal pain upper [Recovering/Resolving]
  - Pain in extremity [Unknown]
  - Nasopharyngitis [Recovering/Resolving]

NARRATIVE: CASE EVENT DATE: 20190315
